FAERS Safety Report 7019644-6 (Version None)
Quarter: 2010Q3

REPORT INFORMATION
  Report Type: 
  Country: None (occurrence: None)
  Receive Date: 20100928
  Receipt Date: 20100915
  Transmission Date: 20110219
  Serious: Yes (Hospitalization, Other)
  Sender: FDA-Public Use
  Company Number: PHEH2008US04569

PATIENT
  Sex: Female

DRUGS (51)
  1. ZOMETA [Suspect]
  2. AREDIA [Suspect]
     Dosage: MONTHLY
  3. LEVOTHYROXINE [Concomitant]
  4. VANCOMYCIN [Concomitant]
  5. ACETAMINOPHEN AND HYDROCODONE BITARTRATE [Concomitant]
  6. LOVENOX [Concomitant]
  7. WARFARIN SODIUM [Concomitant]
  8. SYNTHROID [Concomitant]
  9. NICOTINE [Concomitant]
  10. DIFLUCAN [Concomitant]
  11. PAXIL [Concomitant]
  12. METHADONE [Concomitant]
  13. VIOXX [Concomitant]
  14. LORTAB [Concomitant]
  15. ANZEMET [Concomitant]
  16. CIPROFLOXACIN [Concomitant]
  17. MORPHINE [Concomitant]
  18. OXYCODONE [Concomitant]
  19. IBUPROFEN [Concomitant]
  20. LEVOXYL [Concomitant]
  21. APAP W/ CODEINE [Concomitant]
  22. ERYTHROMYCIN [Concomitant]
  23. FERANCEE [Concomitant]
  24. CEPHALEXIN [Concomitant]
  25. CEFACLOR [Concomitant]
  26. LORABID [Concomitant]
  27. PEPCID [Concomitant]
  28. METHADOSE [Concomitant]
  29. CIPRO [Concomitant]
  30. PREVACID [Concomitant]
  31. PROCHLORPERAZINE [Concomitant]
  32. ZITHROMAX [Concomitant]
  33. LEVAQUIN [Concomitant]
  34. PAROXETINE [Concomitant]
  35. ESTRADIOL [Concomitant]
  36. PROMETHAZINE [Concomitant]
  37. PROTONIX [Concomitant]
  38. METRONIDAZOLE [Concomitant]
  39. GUIATUSS [Concomitant]
  40. LORAZEPAM [Concomitant]
  41. RANITIDINE [Concomitant]
  42. BIAXIN XL [Concomitant]
  43. OMNICEF [Concomitant]
  44. CHLORHEXIDINE GLUCONATE [Concomitant]
  45. CEFDINIR [Concomitant]
  46. OFLOXACIN [Concomitant]
  47. BUSPIRONE HCL [Concomitant]
  48. CLARITHROMYCIN [Concomitant]
  49. TRAMADOL [Concomitant]
  50. LANSOPRAZOLE [Concomitant]
  51. SECONAL [Concomitant]

REACTIONS (43)
  - ADENOMYOSIS [None]
  - ADNEXA UTERI MASS [None]
  - AMENORRHOEA [None]
  - ANHEDONIA [None]
  - ANXIETY [None]
  - BACK PAIN [None]
  - BONE DEBRIDEMENT [None]
  - BONE EROSION [None]
  - BONE SWELLING [None]
  - CELLULITIS [None]
  - CHILLS [None]
  - DENTAL CARIES [None]
  - DISABILITY [None]
  - DYSFUNCTIONAL UTERINE BLEEDING [None]
  - FEMALE STERILISATION [None]
  - HEADACHE [None]
  - HYPOAESTHESIA FACIAL [None]
  - HYPOAESTHESIA ORAL [None]
  - INGROWING NAIL [None]
  - INJURY [None]
  - INTERVERTEBRAL DISC DEGENERATION [None]
  - LYMPHADENOPATHY [None]
  - MASS [None]
  - MUSCLE SPASMS [None]
  - NAIL OPERATION [None]
  - ONYCHOMYCOSIS [None]
  - OPEN WOUND [None]
  - OSTEITIS [None]
  - OSTEONECROSIS OF JAW [None]
  - OVARIAN CYST [None]
  - PAIN [None]
  - PAIN IN EXTREMITY [None]
  - PAIN IN JAW [None]
  - PARONYCHIA [None]
  - PELVIC MASS [None]
  - POLYCYSTIC OVARIES [None]
  - RADIOTHERAPY [None]
  - SALPINGO-OOPHORECTOMY UNILATERAL [None]
  - SWELLING FACE [None]
  - TENDON DISORDER [None]
  - TOOTH EXTRACTION [None]
  - TOOTH INFECTION [None]
  - VAGINITIS BACTERIAL [None]
